FAERS Safety Report 4446257-2 (Version None)
Quarter: 2004Q3

REPORT INFORMATION
  Report Type: 
  Country: None (occurrence: None)
  Receive Date: 20040902
  Receipt Date: 20040520
  Transmission Date: 20050211
  Serious: Yes (Other)
  Sender: FDA-Public Use
  Company Number: 16848

PATIENT
  Age: 41 Year
  Sex: Female

DRUGS (6)
  1. ALDARA [Suspect]
     Dosage: 3 IN 1 WEEK(S)
     Route: 061
     Dates: start: 20000607, end: 20000818
  2. FUROSEMIDE [Suspect]
     Dosage: 40 MG (1 IN 1 DAY(S)
     Route: 048
     Dates: start: 20000801
  3. INSULIN [Concomitant]
  4. PREDNISOLNE (PREDNISOLONE) [Concomitant]
  5. AZATHIOPRINE [Concomitant]
  6. CYCLOSPORINE [Concomitant]

REACTIONS (8)
  - BLOOD CREATININE INCREASED [None]
  - BLOOD UREA INCREASED [None]
  - DEHYDRATION [None]
  - DIABETIC NEPHROPATHY [None]
  - DISEASE RECURRENCE [None]
  - OEDEMA PERIPHERAL [None]
  - ORTHOSTATIC HYPOTENSION [None]
  - RENAL IMPAIRMENT [None]
